FAERS Safety Report 11628131 (Version 4)
Quarter: 2016Q1

REPORT INFORMATION
  Report Type: Spontaneous
  Country: US (occurrence: US)
  Receive Date: 20151014
  Receipt Date: 20160218
  Transmission Date: 20160525
  Serious: No
  Sender: FDA-Public Use
  Company Number: US-009507513-1510USA001919

PATIENT
  Age: 48 Year
  Sex: Female
  Weight: 68.27 kg

DRUGS (1)
  1. NUVARING [Suspect]
     Active Substance: ETHINYL ESTRADIOL\ETONOGESTREL
     Indication: HEADACHE
     Dosage: 3 WEEKS IN 1 WEEK OUT
     Route: 067
     Dates: start: 2010

REACTIONS (5)
  - Menstruation irregular [Unknown]
  - Drug ineffective for unapproved indication [Unknown]
  - Off label use [Unknown]
  - Menorrhagia [Unknown]
  - Incorrect product storage [Unknown]

NARRATIVE: CASE EVENT DATE: 201507
